FAERS Safety Report 15636987 (Version 6)
Quarter: 2020Q2

REPORT INFORMATION
  Report Type: Spontaneous
  Country: US (occurrence: US)
  Receive Date: 20181120
  Receipt Date: 20200625
  Transmission Date: 20200713
  Serious: No
  Sender: FDA-Public Use
  Company Number: US-SA-2018SA315894

PATIENT

DRUGS (2)
  1. CEREZYME [Suspect]
     Active Substance: IMIGLUCERASE
     Dosage: 3600 UNITS, QOW
     Route: 041
     Dates: start: 20150901
  2. CEREZYME [Suspect]
     Active Substance: IMIGLUCERASE
     Indication: GAUCHER^S DISEASE
     Dosage: 3600 UNITS, QOW
     Route: 041
     Dates: start: 20100728

REACTIONS (1)
  - Exposure during pregnancy [Unknown]
